FAERS Safety Report 12595292 (Version 1)
Quarter: 2016Q3

REPORT INFORMATION
  Report Type: Spontaneous
  Country: FR (occurrence: FR)
  Receive Date: 20160726
  Receipt Date: 20160726
  Transmission Date: 20161109
  Serious: Yes (Other)
  Sender: FDA-Public Use
  Company Number: FR-BRISTOL-MYERS SQUIBB COMPANY-BMS-2016-059310

PATIENT
  Age: 66 Year
  Sex: Female

DRUGS (2)
  1. SOFOSBUVIR [Suspect]
     Active Substance: SOFOSBUVIR
     Indication: HEPATITIS C
     Route: 065
  2. DACLATASVIR DIHYDROCHLORIDE [Suspect]
     Active Substance: DACLATASVIR DIHYDROCHLORIDE
     Indication: HEPATITIS C
     Route: 065

REACTIONS (7)
  - Drug ineffective [Unknown]
  - Blood bilirubin abnormal [Unknown]
  - Thrombocytopenia [Unknown]
  - Transaminases abnormal [Unknown]
  - Hepatitis C [Unknown]
  - Viral mutation identified [Unknown]
  - Alpha 1 foetoprotein abnormal [Unknown]
